FAERS Safety Report 25922419 (Version 2)
Quarter: 2025Q4

REPORT INFORMATION
  Report Type: Report from Study
  Country: US (occurrence: US)
  Receive Date: 20251015
  Receipt Date: 20251117
  Transmission Date: 20260118
  Serious: Yes (Death, Hospitalization, Other)
  Sender: AMNEAL
  Company Number: US-AMNEAL PHARMACEUTICALS-2025-AMRX-03865

PATIENT
  Age: 78 Year
  Sex: Male

DRUGS (1)
  1. RELEUKO [Suspect]
     Active Substance: FILGRASTIM-AYOW
     Indication: Chemotherapy
     Dosage: (480MCG/0.8ML) INJECT 480 MCG DAY 2 OF CYTOTOXIC CHEMOTHERAPY
     Route: 058

REACTIONS (5)
  - Death [Fatal]
  - Abdominal wall abscess [Unknown]
  - Sepsis [Unknown]
  - Abdominal pain [Unknown]
  - Product dose omission issue [Unknown]

NARRATIVE: CASE EVENT DATE: 20251110
